FAERS Safety Report 12687451 (Version 3)
Quarter: 2016Q4

REPORT INFORMATION
  Report Type: Spontaneous
  Country: IT (occurrence: IT)
  Receive Date: 20160825
  Receipt Date: 20161010
  Transmission Date: 20170207
  Serious: Yes (Hospitalization)
  Sender: FDA-Public Use
  Company Number: IT-MEDA-2016080072

PATIENT
  Age: 68 Year
  Sex: Male

DRUGS (10)
  1. LOBIVON [Concomitant]
     Active Substance: NEBIVOLOL HYDROCHLORIDE
  2. CYMBALTA [Suspect]
     Active Substance: DULOXETINE HYDROCHLORIDE
     Indication: SUICIDE ATTEMPT
     Route: 048
     Dates: start: 20130124, end: 20130124
  3. PROZIN [Suspect]
     Active Substance: CHLORPROMAZINE HYDROCHLORIDE
     Indication: SUICIDE ATTEMPT
     Route: 048
     Dates: start: 20130124, end: 20130124
  4. ZESTORETIC [Concomitant]
     Active Substance: HYDROCHLOROTHIAZIDE\LISINOPRIL
  5. ZOLPIDEM TARTRATE. [Suspect]
     Active Substance: ZOLPIDEM TARTRATE
     Indication: SUICIDE ATTEMPT
     Route: 048
     Dates: start: 20130124, end: 20130124
  6. ANAFRANIL [Concomitant]
     Active Substance: CLOMIPRAMINE HYDROCHLORIDE
  7. AMITRIPTILINA [Suspect]
     Active Substance: AMITRIPTYLINE HYDROCHLORIDE
     Indication: SUICIDE ATTEMPT
     Route: 048
     Dates: start: 20130124, end: 20130124
  8. DAPAROX 20 MG [Suspect]
     Active Substance: PAROXETINE HYDROCHLORIDE
     Indication: SUICIDE ATTEMPT
     Route: 048
     Dates: start: 20130124, end: 20130124
  9. EN [Suspect]
     Active Substance: DELORAZEPAM
     Indication: SUICIDE ATTEMPT
     Route: 048
     Dates: start: 20130124, end: 20130124
  10. SULAMID [Concomitant]
     Active Substance: AMISULPRIDE

REACTIONS (5)
  - Sopor [Recovered/Resolved]
  - Intentional overdose [Recovered/Resolved]
  - Depressed level of consciousness [Recovered/Resolved]
  - Bradycardia [Recovered/Resolved]
  - Drug abuse [Recovered/Resolved]

NARRATIVE: CASE EVENT DATE: 20130124
